FAERS Safety Report 24060915 (Version 1)
Quarter: 2024Q3

REPORT INFORMATION
  Report Type: Spontaneous
  Country: FI (occurrence: FI)
  Receive Date: 20240708
  Receipt Date: 20240708
  Transmission Date: 20241016
  Serious: Yes (Disabling, Other)
  Sender: SANDOZ
  Company Number: FI-002147023-NVSC2020FI165624

PATIENT
  Age: 40 Year
  Sex: Female

DRUGS (17)
  1. ALPRAZOLAM [Suspect]
     Active Substance: ALPRAZOLAM
     Indication: Insomnia
     Dosage: 0.5 MG, 1D, TO BE TAKEN ONLY WHEN NEEDED, TOOK RARELY
     Route: 065
     Dates: start: 2015
  2. ALPRAZOLAM [Suspect]
     Active Substance: ALPRAZOLAM
     Indication: Sleep disorder
  3. CITALOPRAM [Suspect]
     Active Substance: CITALOPRAM\CITALOPRAM HYDROBROMIDE
     Dosage: 10 MG, 1D
     Route: 065
     Dates: start: 2015, end: 2015
  4. CITALOPRAM [Suspect]
     Active Substance: CITALOPRAM\CITALOPRAM HYDROBROMIDE
     Indication: Antidepressant therapy
     Dosage: 20 MG, 1D
     Route: 065
     Dates: start: 2005
  5. CITALOPRAM [Suspect]
     Active Substance: CITALOPRAM\CITALOPRAM HYDROBROMIDE
     Dosage: 5 MG, 1D
     Route: 065
     Dates: start: 2015, end: 2015
  6. CITALOPRAM [Suspect]
     Active Substance: CITALOPRAM\CITALOPRAM HYDROBROMIDE
     Dosage: 50 MG, 1D
     Route: 065
  7. LITHIUM CARBONATE [Suspect]
     Active Substance: LITHIUM CARBONATE
     Dosage: 150 MG, QD
     Route: 048
     Dates: start: 201502, end: 201502
  8. LITHIUM CARBONATE [Suspect]
     Active Substance: LITHIUM CARBONATE
     Dosage: 2 DF, QD
     Route: 065
     Dates: start: 201502, end: 201502
  9. LITHIUM CARBONATE [Suspect]
     Active Substance: LITHIUM CARBONATE
     Dosage: 2.5 DF, QD
     Route: 065
     Dates: start: 201502
  10. LITHIUM CARBONATE [Suspect]
     Active Substance: LITHIUM CARBONATE
     Dosage: 300 MG, QD
     Route: 048
     Dates: start: 201502, end: 201502
  11. LITHIUM CARBONATE [Suspect]
     Active Substance: LITHIUM CARBONATE
     Indication: Bipolar disorder
     Dosage: 300 MG, 1-2 TIMES A DAY
     Route: 048
  12. LITHIUM CARBONATE [Suspect]
     Active Substance: LITHIUM CARBONATE
     Indication: Antidepressant therapy
     Dosage: 300 MG, 3-4 TIMES A DAY
     Route: 048
     Dates: start: 201308
  13. QUETIAPINE [Suspect]
     Active Substance: QUETIAPINE
     Indication: Bipolar disorder
     Dosage: LOW DOSE
     Route: 065
     Dates: start: 2008, end: 201503
  14. QUETIAPINE [Suspect]
     Active Substance: QUETIAPINE
     Dosage: 25 MG, ONCE OR TWICE DAILY
     Route: 065
     Dates: start: 2008
  15. ZOPICLONE [Suspect]
     Active Substance: ZOPICLONE
     Indication: Insomnia
     Dosage: 3.75 MG, 1D
     Route: 065
     Dates: start: 201308, end: 2015
  16. ZOPICLONE [Suspect]
     Active Substance: ZOPICLONE
     Indication: Sleep disorder
     Dosage: 3.75 MG, BID
     Route: 065
     Dates: start: 2015, end: 2015
  17. ZOPICLONE [Suspect]
     Active Substance: ZOPICLONE
     Dosage: 7.5 MG,1D, TO BE TAKEN ONLY WHEN NEEDED
     Route: 065
     Dates: start: 2015

REACTIONS (9)
  - Cognitive disorder [Recovered/Resolved]
  - Ocular discomfort [Recovering/Resolving]
  - Speech disorder [Recovered/Resolved]
  - Sluggishness [Recovered/Resolved]
  - Disturbance in attention [Recovered/Resolved]
  - Memory impairment [Recovered/Resolved]
  - Weight increased [Recovered/Resolved]
  - Fatigue [Recovered/Resolved]
  - Hypothyroidism [Recovered/Resolved]

NARRATIVE: CASE EVENT DATE: 20130801
